FAERS Safety Report 11662933 (Version 1)
Quarter: 2015Q4

REPORT INFORMATION
  Report Type: Spontaneous
  Country: US (occurrence: US)
  Receive Date: 20151027
  Receipt Date: 20151027
  Transmission Date: 20160304
  Serious: No
  Sender: FDA-Public Use
  Company Number: US-MEDA-2014060080

PATIENT
  Sex: Female

DRUGS (3)
  1. DYMISTA [Suspect]
     Active Substance: AZELASTINE HYDROCHLORIDE\FLUTICASONE PROPIONATE
  2. VERAMYST [Concomitant]
     Active Substance: FLUTICASONE FUROATE
  3. NASONEX [Concomitant]
     Active Substance: MOMETASONE FUROATE

REACTIONS (1)
  - Drug ineffective [Unknown]
